FAERS Safety Report 6562721-4 (Version None)
Quarter: 2010Q1

REPORT INFORMATION
  Report Type: 
  Country: None (occurrence: None)
  Receive Date: 20100130
  Receipt Date: 20091117
  Transmission Date: 20100710
  Serious: No
  Sender: FDA-Public Use
  Company Number: US-ABBOTT-09P-163-0609091-00

PATIENT
  Sex: Male
  Weight: 97.156 kg

DRUGS (5)
  1. HUMIRA [Suspect]
     Indication: CROHN'S DISEASE
     Dates: start: 20090721, end: 20090721
  2. HUMIRA [Suspect]
     Dates: start: 20090801
  3. HUMIRA [Suspect]
     Dates: start: 20090801, end: 20090801
  4. PREDNISONE [Concomitant]
     Indication: CROHN'S DISEASE
  5. BENTYL [Concomitant]
     Indication: ABDOMINAL PAIN

REACTIONS (1)
  - OVERDOSE [None]
